FAERS Safety Report 5459377-0 (Version None)
Quarter: 2007Q3

REPORT INFORMATION
  Report Type: 
  Country: None (occurrence: None)
  Receive Date: 20070919
  Receipt Date: 20070910
  Transmission Date: 20080115
  Serious: Yes (Hospitalization)
  Sender: FDA-Public Use
  Company Number: FR-AVENTIS-200712775FR

PATIENT
  Age: 84 Year
  Sex: Female

DRUGS (14)
  1. LASILIX                            /00032601/ [Suspect]
     Route: 048
  2. TAVANIC [Suspect]
     Route: 048
     Dates: start: 20070807, end: 20070822
  3. TEGELINE                           /00025201/ [Suspect]
     Route: 042
     Dates: start: 20070801, end: 20070805
  4. TEGELINE                           /00025201/ [Suspect]
     Route: 042
     Dates: start: 20070806
  5. LYRICA [Suspect]
     Route: 048
  6. INEXIUM [Concomitant]
  7. LEVOTHYROXINE SODIUM [Concomitant]
  8. LAROXYL [Concomitant]
  9. NOCTRAN [Concomitant]
  10. ACUPAN [Concomitant]
  11. LOXEN [Concomitant]
  12. CORTANCYL [Concomitant]
     Dates: end: 20070801
  13. ATARAX                             /00058402/ [Concomitant]
  14. CALCIPARINE [Concomitant]

REACTIONS (1)
  - RENAL FAILURE [None]
